FAERS Safety Report 20144580 (Version 3)
Quarter: 2022Q3

REPORT INFORMATION
  Report Type: Spontaneous
  Country: JP (occurrence: JP)
  Receive Date: 20211203
  Receipt Date: 20220714
  Transmission Date: 20221027
  Serious: No
  Sender: FDA-Public Use
  Company Number: JP-GSKNCCC-Case-01364863_AE-52341

PATIENT

DRUGS (13)
  1. LAMICTAL [Suspect]
     Active Substance: LAMOTRIGINE
     Dosage: 25 MG, BID
  2. LAMICTAL [Suspect]
     Active Substance: LAMOTRIGINE
     Dosage: 12 MG, QID
  3. MYTELASE [Concomitant]
     Active Substance: AMBENONIUM CHLORIDE
     Dosage: 5 MG, TID
     Dates: start: 20211004
  4. METHYCOBAL TABLET [Concomitant]
     Dosage: 500 ?G, TID
     Dates: start: 20211004
  5. PREDONINE [Concomitant]
     Active Substance: PREDNISOLONE
     Dosage: 3.75 MG, BID
     Dates: start: 20211004
  6. ACTONEL TABLETS [Concomitant]
     Dosage: 17.5 MG, QD
     Dates: start: 20211004
  7. JARDIANCE [Concomitant]
     Active Substance: EMPAGLIFLOZIN
     Dosage: 10 MG, QD
     Dates: start: 20211004
  8. SULFAMETHOXAZOLE\TRIMETHOPRIM [Concomitant]
     Active Substance: SULFAMETHOXAZOLE\TRIMETHOPRIM
     Dosage: UNK, QD
     Dates: start: 20211004
  9. PROGRAF [Concomitant]
     Active Substance: TACROLIMUS
     Dosage: 0.5 MG, QD
     Dates: start: 20211004
  10. PROGRAF [Concomitant]
     Active Substance: TACROLIMUS
     Dosage: 1 MG, BID
     Dates: start: 20211004
  11. PROTECADIN OD TABLET [Concomitant]
     Dosage: UNK, BID
     Dates: start: 20211004
  12. BELSOMRA [Concomitant]
     Active Substance: SUVOREXANT
     Dosage: 20 MG, QD
     Dates: start: 20211004
  13. MESTINON [Concomitant]
     Active Substance: PYRIDOSTIGMINE BROMIDE
     Dosage: 60 MG, QD
     Dates: start: 20211004

REACTIONS (4)
  - Hyperhidrosis [Recovering/Resolving]
  - Increased appetite [Recovering/Resolving]
  - Product use issue [Unknown]
  - Off label use [Unknown]

NARRATIVE: CASE EVENT DATE: 20211005
